FAERS Safety Report 10724552 (Version 3)
Quarter: 2015Q1

REPORT INFORMATION
  Report Type: Spontaneous
  Country: US (occurrence: US)
  Receive Date: 20150120
  Receipt Date: 20150212
  Transmission Date: 20150721
  Serious: Yes (Other)
  Sender: FDA-Public Use
  Company Number: US-GLAXOSMITHKLINE-US2014GSK047495

PATIENT
  Age: 62 Year
  Sex: Female

DRUGS (2)
  1. TAFINLAR [Suspect]
     Active Substance: DABRAFENIB MESYLATE
     Indication: LUNG NEOPLASM MALIGNANT
     Dosage: 100 MG, BID
     Dates: start: 20140903
  2. TAFINLAR [Suspect]
     Active Substance: DABRAFENIB MESYLATE
     Indication: LUNG NEOPLASM MALIGNANT
     Dosage: 200 MG, QD
     Dates: start: 20140814

REACTIONS (6)
  - Headache [Unknown]
  - Pain [Unknown]
  - Emergency care examination [Unknown]
  - Nephrolithiasis [Recovered/Resolved]
  - Acne [Unknown]
  - Acrochordon [Unknown]

NARRATIVE: CASE EVENT DATE: 20150128
